FAERS Safety Report 12329453 (Version 2)
Quarter: 2016Q3

REPORT INFORMATION
  Report Type: Spontaneous
  Country: US (occurrence: US)
  Receive Date: 20160503
  Receipt Date: 20160705
  Transmission Date: 20161109
  Serious: No
  Sender: FDA-Public Use
  Company Number: US-JNJFOC-20160417064

PATIENT
  Age: 42 Year
  Sex: Female
  Weight: 81.65 kg

DRUGS (1)
  1. PREZCOBIX [Suspect]
     Active Substance: COBICISTAT\DARUNAVIR ETHANOLATE
     Indication: VIRAL INFECTION
     Dosage: 800/150 MG
     Route: 048
     Dates: start: 2015

REACTIONS (2)
  - Product packaging quantity issue [Unknown]
  - Drug dose omission [Not Recovered/Not Resolved]

NARRATIVE: CASE EVENT DATE: 201603
